FAERS Safety Report 18054474 (Version 2)
Quarter: 2020Q3

REPORT INFORMATION
  Report Type: Spontaneous
  Country: US (occurrence: US)
  Receive Date: 20200722
  Receipt Date: 20200909
  Transmission Date: 20201103
  Serious: Yes (Death)
  Sender: FDA-Public Use
  Company Number: US-TEVA-2020-US-1805025

PATIENT
  Age: 63 Year
  Sex: Female

DRUGS (3)
  1. TALTZ [Concomitant]
     Active Substance: IXEKIZUMAB
  2. COPAXONE [Suspect]
     Active Substance: GLATIRAMER ACETATE
     Indication: MULTIPLE SCLEROSIS
     Route: 058
     Dates: start: 20180302
  3. COPAXONE [Suspect]
     Active Substance: GLATIRAMER ACETATE
     Route: 065
     Dates: start: 20121115

REACTIONS (1)
  - Death [Fatal]

NARRATIVE: CASE EVENT DATE: 20200705
